FAERS Safety Report 20304157 (Version 3)
Quarter: 2022Q1

REPORT INFORMATION
  Report Type: Spontaneous
  Country: IT (occurrence: IT)
  Receive Date: 20220106
  Receipt Date: 20220307
  Transmission Date: 20220423
  Serious: Yes (Death)
  Sender: FDA-Public Use
  Company Number: None

PATIENT
  Age: 77 Year
  Sex: Female
  Weight: 85 kg

DRUGS (1)
  1. ACYCLOVIR [Suspect]
     Active Substance: ACYCLOVIR
     Indication: Herpes virus infection
     Dosage: 8 GRAM, TOTAL,THERAPEUTIC ERROR
     Dates: end: 20211031

REACTIONS (6)
  - Toxicity to various agents [Fatal]
  - Septic shock [Fatal]
  - Acute kidney injury [Fatal]
  - Skin ulcer [Fatal]
  - Overdose [Fatal]
  - Medication error [Fatal]

NARRATIVE: CASE EVENT DATE: 20211031
